FAERS Safety Report 16943435 (Version 2)
Quarter: 2019Q4

REPORT INFORMATION
  Report Type: Spontaneous
  Country: FR (occurrence: FR)
  Receive Date: 20191022
  Receipt Date: 20191203
  Transmission Date: 20200122
  Serious: Yes (Hospitalization)
  Sender: FDA-Public Use
  Company Number: FR-ABBVIE-19K-056-2964501-00

PATIENT
  Age: 55 Year
  Sex: Male

DRUGS (1)
  1. DUODOPA [Suspect]
     Active Substance: CARBIDOPA\LEVODOPA
     Indication: PRODUCT USED FOR UNKNOWN INDICATION
     Dosage: UNSPECIFIED DOSES (2 CASSETTES PER DAY)
     Route: 050
     Dates: start: 201902

REACTIONS (6)
  - Device dislocation [Unknown]
  - Anaesthetic complication [Unknown]
  - Gastroenteritis [Unknown]
  - Red blood cell count decreased [Unknown]
  - Medical device site haemorrhage [Unknown]
  - Device connection issue [Unknown]

NARRATIVE: CASE EVENT DATE: 2019
